FAERS Safety Report 9002861 (Version 2)
Quarter: 2013Q1

REPORT INFORMATION
  Report Type: Spontaneous
  Country: US (occurrence: US)
  Receive Date: 20130108
  Receipt Date: 20130115
  Transmission Date: 20140127
  Serious: Yes (Death)
  Sender: FDA-Public Use
  Company Number: US-PFIZER INC-2013004422

PATIENT
  Age: 49 Year
  Sex: Female

DRUGS (7)
  1. OXYCODONE HYDROCHLORIDE [Suspect]
     Dosage: UNK
     Route: 048
  2. ALPRAZOLAM [Suspect]
     Dosage: UNK
  3. MIRTAZAPINE [Suspect]
     Dosage: UNK
  4. PROMETHAZINE [Suspect]
     Dosage: UNK
  5. MEPROBAMATE [Suspect]
     Dosage: UNK
  6. CARISOPRODOL [Suspect]
     Dosage: UNK
  7. ZOLPIDEM [Suspect]
     Dosage: UNK

REACTIONS (1)
  - Drug abuse [Fatal]
